FAERS Safety Report 6615306-5 (Version None)
Quarter: 2010Q1

REPORT INFORMATION
  Report Type: 
  Country: None (occurrence: None)
  Receive Date: 20100305
  Receipt Date: 20090831
  Transmission Date: 20100710
  Serious: No
  Sender: FDA-Public Use
  Company Number: A0793782A

PATIENT
  Age: 58 Year
  Sex: Female

DRUGS (10)
  1. REQUIP [Suspect]
     Indication: RESTLESS LEGS SYNDROME
     Dosage: 2MG THREE TIMES PER DAY
     Route: 048
  2. REQUIP XL [Suspect]
     Indication: RESTLESS LEGS SYNDROME
     Dosage: 2MG PER DAY
     Route: 048
  3. TOPAMAX [Concomitant]
  4. ATIVAN [Concomitant]
  5. FLEXERIL [Concomitant]
  6. CYMBALTA [Concomitant]
  7. AMITIZA [Concomitant]
  8. BENICAR [Concomitant]
  9. FIORINAL [Concomitant]
  10. SYNTHROID [Concomitant]

REACTIONS (4)
  - DRUG INEFFECTIVE [None]
  - DYSKINESIA [None]
  - RESTLESS LEGS SYNDROME [None]
  - SOMNOLENCE [None]
